FAERS Safety Report 6650146-2 (Version None)
Quarter: 2010Q1

REPORT INFORMATION
  Report Type: 
  Country: None (occurrence: None)
  Receive Date: 20100325
  Receipt Date: 20090810
  Transmission Date: 20100710
  Serious: No
  Sender: FDA-Public Use
  Company Number: US-KINGPHARMUSA00001-K200900966

PATIENT
  Sex: Male
  Weight: 88.435 kg

DRUGS (2)
  1. ALTACE [Suspect]
     Indication: PREHYPERTENSION
     Dosage: 5 MG, QD
     Route: 048
     Dates: end: 20080101
  2. ALTACE [Suspect]
     Dosage: 5 MG, QD
     Route: 048
     Dates: start: 20090808

REACTIONS (2)
  - COUGH [None]
  - FEELING OF RELAXATION [None]
